FAERS Safety Report 6931546-X (Version None)
Quarter: 2010Q3

REPORT INFORMATION
  Report Type: 
  Country: None (occurrence: None)
  Receive Date: 20100816
  Receipt Date: 20100803
  Transmission Date: 20110219
  Serious: Yes (Life-Threatening, Hospitalization, Other)
  Sender: FDA-Public Use
  Company Number: NSR_00103_2010

PATIENT
  Sex: Male
  Weight: 99.7913 kg

DRUGS (15)
  1. METOCLOPRAMIDE [Suspect]
     Indication: POSTOPERATIVE ILEUS
     Dosage: (20 MG 1X/6  HOURS INTRAVENOUS (NOT OTHERWISE SPECIFIED)), (10 MG 1X/6 HOURS  INTRAVENOUS (NOT OTHER
     Route: 042
     Dates: start: 20080513, end: 20080601
  2. METOCLOPRAMIDE [Suspect]
     Indication: POSTOPERATIVE ILEUS
     Dosage: (20 MG 1X/6  HOURS INTRAVENOUS (NOT OTHERWISE SPECIFIED)), (10 MG 1X/6 HOURS  INTRAVENOUS (NOT OTHER
     Route: 042
     Dates: start: 20080601, end: 20080605
  3. DIGOXIN [Suspect]
     Indication: ATRIAL FIBRILLATION
     Dosage: (0.25 MG QD INTRAVENOUS (NOT OTHERWISE SPECIFIED)), (0.1 MG QD INTRAVENOUS (NOT OTHERWISE SPECIFIED)
     Route: 042
     Dates: start: 20080513, end: 20080524
  4. DIGOXIN [Suspect]
     Indication: CARDIAC FIBRILLATION
     Dosage: (0.25 MG QD INTRAVENOUS (NOT OTHERWISE SPECIFIED)), (0.1 MG QD INTRAVENOUS (NOT OTHERWISE SPECIFIED)
     Route: 042
     Dates: start: 20080513, end: 20080524
  5. DIGOXIN [Suspect]
     Indication: ATRIAL FIBRILLATION
     Dosage: (0.25 MG QD INTRAVENOUS (NOT OTHERWISE SPECIFIED)), (0.1 MG QD INTRAVENOUS (NOT OTHERWISE SPECIFIED)
     Route: 042
     Dates: start: 20080524, end: 20080605
  6. DIGOXIN [Suspect]
     Indication: CARDIAC FIBRILLATION
     Dosage: (0.25 MG QD INTRAVENOUS (NOT OTHERWISE SPECIFIED)), (0.1 MG QD INTRAVENOUS (NOT OTHERWISE SPECIFIED)
     Route: 042
     Dates: start: 20080524, end: 20080605
  7. AMIODARONE HCL [Concomitant]
  8. DILTIAZEM [Concomitant]
  9. ERYTHROMYCIN [Concomitant]
  10. DOXYCYCLINE [Concomitant]
  11. ATORVASTATIN [Concomitant]
  12. ESOMEPRAZOLE MAGNESIUM [Concomitant]
  13. MORPHINE [Concomitant]
  14. LORAZEPAM [Concomitant]
  15. HEPARIN [Concomitant]

REACTIONS (5)
  - ATRIAL FIBRILLATION [None]
  - BRADYARRHYTHMIA [None]
  - BRADYCARDIA [None]
  - CARDIAC ARREST [None]
  - SINUS TACHYCARDIA [None]
